FAERS Safety Report 11092622 (Version 1)
Quarter: 2015Q2

REPORT INFORMATION
  Report Type: Spontaneous
  Country: US (occurrence: US)
  Receive Date: 20150506
  Receipt Date: 20150506
  Transmission Date: 20150821
  Serious: Yes (Other)
  Sender: FDA-Public Use
  Company Number: US-AMGEN-USASP2015043176

PATIENT
  Sex: Female

DRUGS (2)
  1. ENBREL [Suspect]
     Active Substance: ETANERCEPT
     Indication: EXPOSURE VIA PARTNER
     Dosage: 50 MG, QWK
     Dates: start: 20130301
  2. TYLENOL [Concomitant]
     Active Substance: ACETAMINOPHEN

REACTIONS (2)
  - Pregnancy of partner [Recovered/Resolved]
  - Miscarriage of partner [Recovered/Resolved]

NARRATIVE: CASE EVENT DATE: 2013
